FAERS Safety Report 6240555-8 (Version None)
Quarter: 2009Q2

REPORT INFORMATION
  Report Type: 
  Country: None (occurrence: None)
  Receive Date: 20090623
  Receipt Date: 20080919
  Transmission Date: 20091009
  Serious: No
  Sender: FDA-Public Use
  Company Number: US-ASTRAZENECA-2008UW19705

PATIENT
  Age: 5 Year
  Sex: Male
  Weight: 20.4 kg

DRUGS (2)
  1. PULMICORT RESPULES [Suspect]
     Indication: ASTHMA
     Dosage: 0.5 MG, DAILY
     Route: 055
  2. ALBUTEROL [Concomitant]

REACTIONS (2)
  - ASTHMA [None]
  - PSYCHOMOTOR HYPERACTIVITY [None]
